FAERS Safety Report 22234398 (Version 1)
Quarter: 2023Q2

REPORT INFORMATION
  Report Type: Spontaneous
  Country: US (occurrence: None)
  Receive Date: 20230420
  Receipt Date: 20230420
  Transmission Date: 20230722
  Serious: No
  Sender: FDA-Public Use
  Company Number: US-ROCHE-3205239

PATIENT
  Sex: Female

DRUGS (4)
  1. ESBRIET [Suspect]
     Active Substance: PIRFENIDONE
     Indication: Pulmonary fibrosis
     Route: 048
     Dates: start: 20190410
  2. ESBRIET [Suspect]
     Active Substance: PIRFENIDONE
     Dosage: TAKE 3 CAPSULES BY MOUTH THREE TIMES A DAY AT THE SAME TIME EACH DAY WITH MEALS.
     Route: 048
  3. PREDNISONE [Concomitant]
     Active Substance: PREDNISONE
  4. ROBITUSSIN D [Concomitant]

REACTIONS (4)
  - Nasopharyngitis [Recovering/Resolving]
  - Sinusitis [Recovering/Resolving]
  - Nasal congestion [Unknown]
  - Productive cough [Unknown]
